FAERS Safety Report 25598042 (Version 1)
Quarter: 2025Q3

REPORT INFORMATION
  Report Type: Spontaneous
  Country: US (occurrence: US)
  Receive Date: 20250723
  Receipt Date: 20250723
  Transmission Date: 20251020
  Serious: Yes (Other)
  Sender: MYLAN
  Company Number: US-MYLANLABS-2025M1061674

PATIENT
  Age: 74 Year
  Sex: Female

DRUGS (28)
  1. DEXAMETHASONE [Suspect]
     Active Substance: DEXAMETHASONE
     Indication: Thrombocytopenia
  2. DEXAMETHASONE [Suspect]
     Active Substance: DEXAMETHASONE
     Route: 065
  3. DEXAMETHASONE [Suspect]
     Active Substance: DEXAMETHASONE
     Route: 065
  4. DEXAMETHASONE [Suspect]
     Active Substance: DEXAMETHASONE
  5. SILDENAFIL [Concomitant]
     Active Substance: SILDENAFIL
     Indication: Pulmonary arterial hypertension
  6. SILDENAFIL [Concomitant]
     Active Substance: SILDENAFIL
     Route: 065
  7. SILDENAFIL [Concomitant]
     Active Substance: SILDENAFIL
     Route: 065
  8. SILDENAFIL [Concomitant]
     Active Substance: SILDENAFIL
  9. MACITENTAN [Concomitant]
     Active Substance: MACITENTAN
     Indication: Pulmonary arterial hypertension
  10. MACITENTAN [Concomitant]
     Active Substance: MACITENTAN
     Route: 065
  11. MACITENTAN [Concomitant]
     Active Substance: MACITENTAN
     Route: 065
  12. MACITENTAN [Concomitant]
     Active Substance: MACITENTAN
  13. TREPROSTINIL [Concomitant]
     Active Substance: TREPROSTINIL
     Indication: Pulmonary arterial hypertension
  14. TREPROSTINIL [Concomitant]
     Active Substance: TREPROSTINIL
  15. TREPROSTINIL [Concomitant]
     Active Substance: TREPROSTINIL
     Route: 058
  16. TREPROSTINIL [Concomitant]
     Active Substance: TREPROSTINIL
     Route: 058
  17. TREPROSTINIL [Concomitant]
     Active Substance: TREPROSTINIL
  18. TREPROSTINIL [Concomitant]
     Active Substance: TREPROSTINIL
  19. TREPROSTINIL [Concomitant]
     Active Substance: TREPROSTINIL
     Route: 058
  20. TREPROSTINIL [Concomitant]
     Active Substance: TREPROSTINIL
     Route: 058
  21. EPOPROSTENOL [Concomitant]
     Active Substance: EPOPROSTENOL
     Indication: Pulmonary arterial hypertension
  22. EPOPROSTENOL [Concomitant]
     Active Substance: EPOPROSTENOL
  23. EPOPROSTENOL [Concomitant]
     Active Substance: EPOPROSTENOL
     Route: 065
  24. EPOPROSTENOL [Concomitant]
     Active Substance: EPOPROSTENOL
     Route: 065
  25. EPOPROSTENOL [Concomitant]
     Active Substance: EPOPROSTENOL
  26. EPOPROSTENOL [Concomitant]
     Active Substance: EPOPROSTENOL
  27. EPOPROSTENOL [Concomitant]
     Active Substance: EPOPROSTENOL
     Route: 065
  28. EPOPROSTENOL [Concomitant]
     Active Substance: EPOPROSTENOL
     Route: 065

REACTIONS (1)
  - Treatment failure [Unknown]
